FAERS Safety Report 21940716 (Version 1)
Quarter: 2023Q1

REPORT INFORMATION
  Report Type: Spontaneous
  Country: RU (occurrence: RU)
  Receive Date: 20230201
  Receipt Date: 20230201
  Transmission Date: 20230417
  Serious: No
  Sender: FDA-Public Use
  Company Number: RU-EXELIXIS-CABO-22052029

PATIENT
  Age: 50 Year
  Sex: Male
  Weight: 89 kg

DRUGS (2)
  1. CABOMETYX [Suspect]
     Active Substance: CABOZANTINIB S-MALATE
     Indication: Metastatic renal cell carcinoma
     Dosage: 40 MG, QD
     Route: 048
     Dates: start: 20220131
  2. OPDIVO [Suspect]
     Active Substance: NIVOLUMAB
     Indication: Metastatic renal cell carcinoma
     Dosage: 240 MG, ONCE PER 28 DAYS
     Route: 042
     Dates: start: 20220131

REACTIONS (1)
  - Hair colour changes [Unknown]

NARRATIVE: CASE EVENT DATE: 20220316
